FAERS Safety Report 9517447 (Version 1)
Quarter: 2013Q3

REPORT INFORMATION
  Report Type: Spontaneous
  Country: FR (occurrence: FR)
  Receive Date: 20130911
  Receipt Date: 20130911
  Transmission Date: 20140515
  Serious: Yes (Hospitalization)
  Sender: FDA-Public Use
  Company Number: FR-WATSON-2013-16353

PATIENT
  Age: 66 Year
  Sex: Male

DRUGS (8)
  1. FLUOXETINE (UNKNOWN) [Suspect]
     Indication: DEPRESSION
     Dosage: 20 MG, UNKNOWN
     Route: 048
     Dates: start: 20130411, end: 20130703
  2. PERINDOPRIL (UNKNOWN) [Suspect]
     Indication: HYPERTENSION
     Dosage: 4 MG, UNKNOWN
     Route: 048
     Dates: start: 20130514, end: 20130704
  3. DOLIPRANE [Suspect]
     Indication: MUSCULOSKELETAL PAIN
     Dosage: 3 DF, UNKNOWN
     Route: 048
     Dates: start: 20130403, end: 20130704
  4. PRADAXA [Suspect]
     Indication: ISCHAEMIC STROKE
     Dosage: 220 MG, UNKNOWN
     Route: 048
     Dates: start: 20130506, end: 20130708
  5. TAHOR [Suspect]
     Indication: PROPHYLAXIS
     Dosage: 40 MG, UNKNOWN
     Route: 048
     Dates: start: 20130403, end: 20130704
  6. DAFALGAN [Suspect]
     Indication: MUSCULOSKELETAL PAIN
     Dosage: 3 DF, UNKNOWN
     Route: 048
     Dates: start: 20130613, end: 20130704
  7. DUPHALAC /00163401/ [Suspect]
     Indication: CONSTIPATION
     Dosage: 1 DF, UNKNOWN
     Route: 048
     Dates: start: 20130613, end: 20130704
  8. CONTRAMAL [Concomitant]
     Indication: PRODUCT USED FOR UNKNOWN INDICATION
     Dosage: UNK, UNKNOWN
     Route: 065

REACTIONS (1)
  - Neutropenia [Recovered/Resolved]
